FAERS Safety Report 12327976 (Version 1)
Quarter: 2016Q2

REPORT INFORMATION
  Report Type: Spontaneous
  Country: US (occurrence: US)
  Receive Date: 20160503
  Receipt Date: 20160503
  Transmission Date: 20160815
  Serious: Yes (Other)
  Sender: FDA-Public Use
  Company Number: US-TARO-2016TAR00082

PATIENT
  Sex: Male

DRUGS (1)
  1. CARBAMAZEPINE EXTENDED RELEASE TABLETS USP 400MG [Suspect]
     Active Substance: CARBAMAZEPINE

REACTIONS (3)
  - Diarrhoea [Unknown]
  - Product substitution issue [Unknown]
  - Loss of consciousness [Unknown]
